FAERS Safety Report 17810161 (Version 1)
Quarter: 2020Q2

REPORT INFORMATION
  Report Type: Spontaneous
  Country: US (occurrence: US)
  Receive Date: 20200520
  Receipt Date: 20200520
  Transmission Date: 20200714
  Serious: No
  Sender: FDA-Public Use
  Company Number: US-TEIKOKU PHARMA USA-TPU2020-00223

PATIENT
  Age: 65 Year
  Sex: Female
  Weight: 67.65 kg

DRUGS (5)
  1. LIDOCAINE PATCH [Suspect]
     Active Substance: LIDOCAINE
     Indication: BACK PAIN
     Dates: start: 201908
  2. NORTRIPTYLINE [Concomitant]
     Active Substance: NORTRIPTYLINE
     Indication: COUGH
  3. OSPHENA [Concomitant]
     Active Substance: OSPEMIFENE
     Indication: HORMONE THERAPY
  4. ZYRTEC [Concomitant]
     Active Substance: CETIRIZINE HYDROCHLORIDE
     Indication: HYPERSENSITIVITY
  5. VITAMINS [Concomitant]
     Active Substance: VITAMINS

REACTIONS (2)
  - Prescription drug used without a prescription [Unknown]
  - Alopecia [Unknown]

NARRATIVE: CASE EVENT DATE: 201910
